FAERS Safety Report 4274968-0 (Version None)
Quarter: 2004Q1

REPORT INFORMATION
  Report Type: 
  Country: None (occurrence: None)
  Receive Date: 20040120
  Receipt Date: 20040108
  Transmission Date: 20041129
  Serious: Yes (Disabling)
  Sender: FDA-Public Use
  Company Number: 7154

PATIENT
  Age: 24 Month
  Sex: Male

DRUGS (2)
  1. VINCRISTINE [Suspect]
     Indication: CHEMOTHERAPY
     Dosage: 1.5 MG/M2 WEEKLY,
  2. ITRACONAZOLE [Suspect]
     Indication: PROPHYLAXIS

REACTIONS (10)
  - ABASIA [None]
  - ANAL SPHINCTER ATONY [None]
  - AREFLEXIA [None]
  - ASTHENIA [None]
  - DEMYELINATION [None]
  - DRUG INTERACTION [None]
  - ILEUS [None]
  - NEUROTOXICITY [None]
  - PERIPHERAL SENSORIMOTOR NEUROPATHY [None]
  - URINARY RETENTION [None]
